FAERS Safety Report 20020613 (Version 3)
Quarter: 2021Q4

REPORT INFORMATION
  Report Type: Report from Study
  Country: MX (occurrence: MX)
  Receive Date: 20211101
  Receipt Date: 20211222
  Transmission Date: 20220303
  Serious: Yes (Hospitalization)
  Sender: FDA-Public Use
  Company Number: MX-NOVARTISPH-NVSC2021MX238383

PATIENT
  Sex: Female
  Weight: 54 kg

DRUGS (4)
  1. DIOVAN [Suspect]
     Active Substance: VALSARTAN
     Indication: Hypertension
     Dosage: 1 DOSAGE FORM (80 MG)
     Route: 048
     Dates: start: 2001
  2. DIOVAN [Suspect]
     Active Substance: VALSARTAN
     Dosage: 1 DOSAGE FORM, QD
     Route: 048
     Dates: start: 2010, end: 2010
  3. DIOVAN [Suspect]
     Active Substance: VALSARTAN
     Dosage: 1.5 DOSAGE FORM (160 MG)
     Route: 048
     Dates: start: 2010
  4. DIOVAN [Suspect]
     Active Substance: VALSARTAN
     Dosage: 1.5 DOSAGE FORM, QD
     Route: 048

REACTIONS (6)
  - Gastrointestinal disorder [Recovered/Resolved]
  - Hypoacusis [Unknown]
  - Glucose tolerance impaired [Unknown]
  - Hypertension [Unknown]
  - Wrong technique in product usage process [Unknown]
  - Drug ineffective [Unknown]

NARRATIVE: CASE EVENT DATE: 20010101
